FAERS Safety Report 5806524-4 (Version None)
Quarter: 2008Q3

REPORT INFORMATION
  Report Type: 
  Country: None (occurrence: None)
  Receive Date: 20080710
  Receipt Date: 20080703
  Transmission Date: 20090109
  Serious: Yes (Hospitalization)
  Sender: FDA-Public Use
  Company Number: CA-BOEHRINGER INGELHEIM GMBH, GERMANY-2008-BP-10310RO

PATIENT
  Age: 70 Year
  Sex: Male

DRUGS (1)
  1. CHLORPROMAZINE [Suspect]

REACTIONS (2)
  - HEADACHE [None]
  - SKIN DISCOLOURATION [None]
